FAERS Safety Report 8975566 (Version 3)
Quarter: 2013Q1

REPORT INFORMATION
  Report Type: Spontaneous
  Country: DE (occurrence: DE)
  Receive Date: 20121219
  Receipt Date: 20130226
  Transmission Date: 20140127
  Serious: Yes (Hospitalization, Other)
  Sender: FDA-Public Use
  Company Number: DE-GILEAD-2012-0066299

PATIENT
  Age: 56 Year
  Sex: Male

DRUGS (8)
  1. VIREAD [Suspect]
     Indication: CHRONIC HEPATITIS B
     Dosage: 245 MG, QD
     Route: 048
     Dates: start: 20120629
  2. RITUXIMAB [Suspect]
     Indication: NON-HODGKIN^S LYMPHOMA
  3. CYCLOPHOSPHAMIDE [Suspect]
     Indication: NON-HODGKIN^S LYMPHOMA
  4. DOXORUBICIN [Suspect]
     Indication: NON-HODGKIN^S LYMPHOMA
  5. VINCRISTINE [Suspect]
     Indication: NON-HODGKIN^S LYMPHOMA
  6. PREDNISOLONE [Suspect]
     Indication: NON-HODGKIN^S LYMPHOMA
  7. COTRIM [Concomitant]
     Indication: PROPHYLAXIS
     Dosage: 960 MG, TID
     Route: 048
     Dates: start: 20120629, end: 20121114
  8. ACIC                               /00587301/ [Concomitant]
     Indication: PROPHYLAXIS
     Dosage: 1200 MG, QD
     Route: 048
     Dates: start: 20120629, end: 20121114

REACTIONS (4)
  - Genotype drug resistance test positive [Unknown]
  - Hepatitis [Unknown]
  - Viral load increased [Recovering/Resolving]
  - Drug ineffective [Unknown]
